FAERS Safety Report 15541464 (Version 1)
Quarter: 2018Q4

REPORT INFORMATION
  Report Type: Spontaneous
  Country: US (occurrence: US)
  Receive Date: 20181023
  Receipt Date: 20181023
  Transmission Date: 20190205
  Serious: No
  Sender: FDA-Public Use
  Company Number: US-TORRENT-00006228

PATIENT
  Age: 84 Year
  Sex: Female
  Weight: 63 kg

DRUGS (1)
  1. ESCITALOPRAM [Suspect]
     Active Substance: ESCITALOPRAM OXALATE
     Indication: PRODUCT USED FOR UNKNOWN INDICATION
     Dosage: 5 MG OF THE TABLET REDUCE IT TO HALF I.E. 2.5 MG.

REACTIONS (3)
  - Product prescribing error [Unknown]
  - Body height decreased [Unknown]
  - Wrong technique in product usage process [Unknown]

NARRATIVE: CASE EVENT DATE: 20180430
